FAERS Safety Report 9672304 (Version 1)
Quarter: 2013Q4

REPORT INFORMATION
  Report Type: Spontaneous
  Country: US (occurrence: US)
  Receive Date: 20131106
  Receipt Date: 20131106
  Transmission Date: 20140711
  Serious: Yes (Life-Threatening)
  Sender: FDA-Public Use
  Company Number: US-ROXANE LABORATORIES, INC.-2013-RO-01770RO

PATIENT
  Age: 31 Year
  Sex: Female

DRUGS (8)
  1. METHADONE [Suspect]
     Indication: ABDOMINAL PAIN
     Dosage: 20 MG
     Route: 048
  2. METHADONE [Suspect]
     Indication: BACK PAIN
  3. HYDROMORPHONE [Suspect]
  4. ONDANSETRON [Suspect]
     Indication: NAUSEA
  5. OLANZAPINE [Suspect]
     Route: 048
  6. HALOPERIDOL [Suspect]
     Route: 042
  7. HALOPERIDOL [Concomitant]
     Indication: AGITATION
     Dosage: 5 MG
     Route: 042
  8. METHADONE [Concomitant]
     Indication: DRUG WITHDRAWAL SYNDROME
     Route: 042

REACTIONS (3)
  - Torsade de pointes [Recovered/Resolved]
  - Ventricular extrasystoles [Recovered/Resolved]
  - Tachycardia [Unknown]
